FAERS Safety Report 15275257 (Version 1)
Quarter: 2018Q3

REPORT INFORMATION
  Report Type: Spontaneous
  Country: US (occurrence: US)
  Receive Date: 20180814
  Receipt Date: 20180814
  Transmission Date: 20181010
  Serious: Yes (Other)
  Sender: FDA-Public Use
  Company Number: US-ROCHE-2167976

PATIENT
  Age: 56 Year
  Sex: Female
  Weight: 81.72 kg

DRUGS (12)
  1. SEROQUEL [Concomitant]
     Active Substance: QUETIAPINE FUMARATE
     Dosage: AT BEDTIME AS NEEDED ;ONGOING: YES
     Route: 048
  2. SEROQUEL [Concomitant]
     Active Substance: QUETIAPINE FUMARATE
     Indication: TREMOR
     Dosage: AT BEDTIME ;ONGOING: NO
     Route: 048
  3. KLONOPIN [Suspect]
     Active Substance: CLONAZEPAM
     Indication: DYSKINESIA
     Dosage: ONGOING:NO
     Route: 048
  4. AMANTADINE. [Suspect]
     Active Substance: AMANTADINE HYDROCHLORIDE
     Indication: DYSKINESIA
     Dosage: ONGOING:NO
     Route: 048
     Dates: start: 201806, end: 201806
  5. AMANTADINE. [Suspect]
     Active Substance: AMANTADINE HYDROCHLORIDE
     Dosage: ONGOING:NO
     Route: 048
     Dates: start: 201806, end: 20180619
  6. KLONOPIN [Suspect]
     Active Substance: CLONAZEPAM
     Indication: TREMOR
     Dosage: ONGOING:NO
     Route: 048
     Dates: start: 2004
  7. AMANTADINE. [Suspect]
     Active Substance: AMANTADINE HYDROCHLORIDE
     Dosage: NO
     Route: 048
     Dates: start: 201806, end: 201806
  8. AMANTADINE. [Suspect]
     Active Substance: AMANTADINE HYDROCHLORIDE
     Dosage: ONGOING:NO
     Route: 048
     Dates: start: 20180620, end: 20180623
  9. AMANTADINE. [Suspect]
     Active Substance: AMANTADINE HYDROCHLORIDE
     Dosage: ONGOING:NO
     Route: 048
     Dates: start: 201806, end: 201806
  10. BENADRYL [Suspect]
     Active Substance: DIPHENHYDRAMINE HYDROCHLORIDE
     Indication: RASH ERYTHEMATOUS
     Dosage: AS NEEDED ONLY TOOK FOR 1 OR 2 DAYS ;ONGOING: NO
     Route: 048
  11. KLONOPIN [Suspect]
     Active Substance: CLONAZEPAM
     Dosage: ONGOING:YES
     Route: 048
  12. SEROQUEL [Concomitant]
     Active Substance: QUETIAPINE FUMARATE
     Dosage: AS NEEDED ;ONGOING: NO
     Route: 048
     Dates: start: 20180623

REACTIONS (4)
  - Lower limb fracture [Recovered/Resolved with Sequelae]
  - Fall [Unknown]
  - Rash erythematous [Recovered/Resolved]
  - Insomnia [Unknown]

NARRATIVE: CASE EVENT DATE: 20170413
